FAERS Safety Report 20346644 (Version 1)
Quarter: 2022Q1

REPORT INFORMATION
  Report Type: Report from Study
  Country: US (occurrence: US)
  Receive Date: 20220118
  Receipt Date: 20220118
  Transmission Date: 20220423
  Serious: No
  Sender: FDA-Public Use
  Company Number: US-BIONICAL EMAS-2022ETO000003

PATIENT

DRUGS (1)
  1. ALKINDI SPRINKLE [Suspect]
     Active Substance: HYDROCORTISONE
     Indication: Adrenocortical insufficiency neonatal
     Dosage: 1 MG, TID
     Route: 048
     Dates: start: 20211214

REACTIONS (3)
  - Incorrect dose administered [Unknown]
  - Infantile spitting up [Unknown]
  - Hunger [Unknown]

NARRATIVE: CASE EVENT DATE: 20210101
